FAERS Safety Report 25171040 (Version 2)
Quarter: 2025Q3

REPORT INFORMATION
  Report Type: Spontaneous
  Country: US (occurrence: US)
  Receive Date: 20250408
  Receipt Date: 20250711
  Transmission Date: 20251021
  Serious: No
  Sender: ROCHE
  Company Number: US-ROCHE-10000249593

PATIENT
  Sex: Female

DRUGS (13)
  1. XOLAIR PFS [Suspect]
     Active Substance: OMALIZUMAB
     Indication: Urticaria
     Dosage: STRENGTH: 150MG/ML
     Route: 058
  2. XOLAIR PFS [Suspect]
     Active Substance: OMALIZUMAB
     Route: 058
  3. ATORVASTATIN POW [Concomitant]
  4. BREZTRI AERO AER 160-9-4 [Concomitant]
  5. DULOXETINE ? CPE 60MG [Concomitant]
  6. FAMOTIDINE TAB 40MG [Concomitant]
  7. LEVOTHYROXIN TAB 112MCG [Concomitant]
  8. METFORMIN HC TAB 500MG [Concomitant]
  9. MONTELUKAST POW [Concomitant]
  10. MOUNJARO SOA 2.5MG/0.5ML [Concomitant]
  11. PANTOPRAZOLE SOL 40MG [Concomitant]
  12. PREGABALIN CAP 200MG [Concomitant]
  13. TOPROL XL TB2 50MG [Concomitant]

REACTIONS (2)
  - Dyspnoea [Not Recovered/Not Resolved]
  - Sleep disorder [Not Recovered/Not Resolved]
